FAERS Safety Report 8008691-3 (Version None)
Quarter: 2011Q4

REPORT INFORMATION
  Report Type: 
  Country: None (occurrence: None)
  Receive Date: 20111227
  Receipt Date: 20111214
  Transmission Date: 20120403
  Serious: Yes (Hospitalization)
  Sender: FDA-Public Use
  Company Number: FR-MERCK-1112USA02505

PATIENT
  Age: 38 Month
  Sex: Male

DRUGS (9)
  1. VANCOMYCIN [Suspect]
     Indication: FEBRILE BONE MARROW APLASIA
     Route: 042
     Dates: start: 20091216, end: 20091227
  2. HEPARIN [Concomitant]
     Route: 065
     Dates: start: 20091203
  3. AMBISOME [Suspect]
     Indication: FEBRILE BONE MARROW APLASIA
     Route: 042
     Dates: start: 20091216, end: 20091227
  4. FLUCONAZOLE [Concomitant]
     Route: 065
     Dates: start: 20091216
  5. URSOLVAN [Concomitant]
     Route: 065
     Dates: start: 20091203, end: 20100105
  6. PRIMAXIN [Suspect]
     Indication: FEBRILE BONE MARROW APLASIA
     Route: 042
     Dates: start: 20091216, end: 20091227
  7. BACTRIM [Concomitant]
     Route: 048
  8. ACYCLOVIR [Concomitant]
     Route: 065
     Dates: start: 20091118
  9. COLIMYCIN [Concomitant]
     Route: 048

REACTIONS (1)
  - PANCREATITIS ACUTE [None]
